FAERS Safety Report 18483823 (Version 1)
Quarter: 2020Q4

REPORT INFORMATION
  Report Type: Spontaneous
  Country: DE (occurrence: DE)
  Receive Date: 20201110
  Receipt Date: 20201110
  Transmission Date: 20210114
  Serious: Yes (Life-Threatening, Hospitalization, Other)
  Sender: FDA-Public Use
  Company Number: DE-ALKEM LABORATORIES LIMITED-DE-ALKEM-2020-07780

PATIENT
  Age: 21 Year
  Sex: Male
  Weight: 56 kg

DRUGS (3)
  1. METHYLENEDIOXYMETHAMPHETAMINE [Suspect]
     Active Substance: MIDOMAFETAMINE
     Indication: PRODUCT USED FOR UNKNOWN INDICATION
     Route: 016
  2. CLONAZEPAM. [Suspect]
     Active Substance: CLONAZEPAM
     Indication: PRODUCT USED FOR UNKNOWN INDICATION
     Route: 016
  3. PREGABALIN. [Suspect]
     Active Substance: PREGABALIN
     Indication: PRODUCT USED FOR UNKNOWN INDICATION
     Dosage: UNK
     Route: 065

REACTIONS (23)
  - Rhabdomyolysis [Recovered/Resolved]
  - Tonic clonic movements [Unknown]
  - Tachycardia [Recovered/Resolved]
  - Hepatic failure [Recovered/Resolved]
  - Renal failure [Recovered/Resolved]
  - Drug abuse [Unknown]
  - Blood lactic acid increased [Recovered/Resolved]
  - Muscle haemorrhage [Unknown]
  - Hyperthermia [Recovered/Resolved]
  - Haemoglobin decreased [Recovered/Resolved]
  - Seizure [Unknown]
  - Hypoglycaemia [Recovered/Resolved]
  - Mydriasis [Recovered/Resolved]
  - Coagulopathy [Recovered/Resolved]
  - Toxicity to various agents [Unknown]
  - Dehydration [Recovered/Resolved]
  - Generalised tonic-clonic seizure [Recovered/Resolved]
  - Haemorrhage [Recovered/Resolved]
  - Nervous system disorder [Recovered/Resolved]
  - Hyperpyrexia [Recovered/Resolved]
  - Acute kidney injury [Recovered/Resolved]
  - Platelet count decreased [Recovered/Resolved]
  - Gastrointestinal haemorrhage [Recovered/Resolved]
